FAERS Safety Report 21582974 (Version 1)
Quarter: 2022Q4

REPORT INFORMATION
  Report Type: Spontaneous
  Country: US (occurrence: None)
  Receive Date: 20221110
  Receipt Date: 20221110
  Transmission Date: 20230112
  Serious: Yes (Hospitalization)
  Sender: FDA-Public Use
  Company Number: None

PATIENT
  Sex: Male
  Weight: 57.4 kg

DRUGS (5)
  1. CYTARABINE [Suspect]
     Active Substance: CYTARABINE
     Dates: end: 20221028
  2. DAUNORUBICIN [Suspect]
     Active Substance: DAUNORUBICIN
     Dates: end: 20221028
  3. METHOTREXATE [Suspect]
     Active Substance: METHOTREXATE
     Dates: end: 20221028
  4. ONCASPAR [Suspect]
     Active Substance: PEGASPARGASE
     Dates: end: 20221025
  5. PREDNISOLONE [Suspect]
     Active Substance: PREDNISOLONE
     Dates: end: 20221103

REACTIONS (5)
  - Tonic clonic movements [None]
  - Blood pressure increased [None]
  - Partial seizures [None]
  - Computerised tomogram abnormal [None]
  - Nervous system disorder [None]

NARRATIVE: CASE EVENT DATE: 20221103
